FAERS Safety Report 21411324 (Version 7)
Quarter: 2023Q1

REPORT INFORMATION
  Report Type: Spontaneous
  Country: US (occurrence: US)
  Receive Date: 20221005
  Receipt Date: 20230120
  Transmission Date: 20230418
  Serious: Yes (Other)
  Sender: FDA-Public Use
  Company Number: US-PFIZER INC-PV202200075750

PATIENT
  Age: 68 Year
  Sex: Female

DRUGS (2)
  1. IBRANCE [Suspect]
     Active Substance: PALBOCICLIB
     Indication: Breast cancer female
     Dosage: 125 MG
     Route: 048
     Dates: start: 202205
  2. IBRANCE [Suspect]
     Active Substance: PALBOCICLIB
     Dosage: 100 MG, CYCLIC (ONCE A DAY FOR 3 WEEKS THEN 1 WEEK OFF, THEN REPEATS)
     Route: 048
     Dates: start: 2022

REACTIONS (12)
  - Condition aggravated [Unknown]
  - Neuropathic muscular atrophy [Unknown]
  - Herpes zoster [Not Recovered/Not Resolved]
  - Muscle twitching [Unknown]
  - Abdominal pain upper [Not Recovered/Not Resolved]
  - Visual impairment [Unknown]
  - Tremor [Unknown]
  - Eating disorder [Unknown]
  - Immune system disorder [Unknown]
  - Nasopharyngitis [Unknown]
  - Respiratory syncytial virus infection [Unknown]
  - Eye infection [Not Recovered/Not Resolved]

NARRATIVE: CASE EVENT DATE: 20220101
